FAERS Safety Report 20419274 (Version 1)
Quarter: 2022Q1

REPORT INFORMATION
  Report Type: Other
  Country: NL (occurrence: None)
  Receive Date: 20220203
  Receipt Date: 20220203
  Transmission Date: 20220423
  Serious: Yes (Other)
  Sender: FDA-Public Use
  Company Number: NL-Encube-000138

PATIENT
  Age: 14 Year
  Sex: Male

DRUGS (3)
  1. TRIAMCINOLONE [Suspect]
     Active Substance: TRIAMCINOLONE
     Indication: Pericardial effusion
     Dosage: 320 MG
     Route: 032
  2. PREDNISONE [Concomitant]
     Active Substance: PREDNISONE
     Indication: Product used for unknown indication
  3. COLCHICINE [Concomitant]
     Active Substance: COLCHICINE
     Indication: Product used for unknown indication

REACTIONS (6)
  - Pericardial effusion [Recovered/Resolved]
  - Disease recurrence [Recovered/Resolved]
  - Fatigue [Unknown]
  - Asthenia [Unknown]
  - Malaise [Unknown]
  - Initial insomnia [Unknown]
